FAERS Safety Report 20323028 (Version 1)
Quarter: 2022Q1

REPORT INFORMATION
  Report Type: Spontaneous
  Country: US (occurrence: None)
  Receive Date: 20220111
  Receipt Date: 20220111
  Transmission Date: 20220423
  Serious: No
  Sender: FDA-Public Use
  Company Number: None

PATIENT
  Age: 68 Year
  Sex: Female
  Weight: 123.8 kg

DRUGS (22)
  1. CAPECITABINE [Suspect]
     Active Substance: CAPECITABINE
     Indication: Breast cancer
     Dosage: FREQUENCY : TWICE A DAY;?
     Route: 048
     Dates: start: 20210407, end: 20220111
  2. ASPIRIN [Concomitant]
     Active Substance: ASPIRIN
  3. BUSPIRONE HCL [Concomitant]
  4. Calmoseptine [Concomitant]
  5. DIAZEPAM [Concomitant]
  6. DOXYCYCLINE HYCLATE [Concomitant]
  7. FERROUS SULFATE [Concomitant]
     Active Substance: FERROUS SULFATE
  8. FUROSEMIDE [Concomitant]
  9. GABAPENTIN [Concomitant]
  10. HYDROCHLOROTHIAZIDE [Concomitant]
  11. J + J Covid vaccine [Concomitant]
  12. LETROZOLE [Concomitant]
     Active Substance: LETROZOLE
  13. LEVOTHYROXINE SODIUM [Concomitant]
     Active Substance: LEVOTHYROXINE SODIUM
  14. DIPHENHYDRAMINE HYDROCHLORIDE\LIDOCAINE HYDROCHLORIDE\NYSTATIN [Concomitant]
     Active Substance: DIPHENHYDRAMINE HYDROCHLORIDE\LIDOCAINE HYDROCHLORIDE\NYSTATIN
  15. LISINOPRIL [Concomitant]
     Active Substance: LISINOPRIL
  16. NYSTATIN [Concomitant]
     Active Substance: NYSTATIN
  17. OXYCODONE HYDROCHLORIDE [Concomitant]
     Active Substance: OXYCODONE HYDROCHLORIDE
  18. PREDNISONE [Concomitant]
     Active Substance: PREDNISONE
  19. PREDNISONE [Concomitant]
     Active Substance: PREDNISONE
  20. PROTONIX [Concomitant]
     Active Substance: PANTOPRAZOLE SODIUM
  21. TRIAMTERENE [Concomitant]
     Active Substance: TRIAMTERENE
  22. XARELTO [Concomitant]
     Active Substance: RIVAROXABAN

REACTIONS (1)
  - Death [None]

NARRATIVE: CASE EVENT DATE: 20220111
